FAERS Safety Report 12714146 (Version 1)
Quarter: 2016Q3

REPORT INFORMATION
  Report Type: Spontaneous
  Country: US (occurrence: US)
  Receive Date: 20160905
  Receipt Date: 20160905
  Transmission Date: 20161109
  Serious: No
  Sender: FDA-Public Use
  Company Number: US-PFIZER INC-2016408888

PATIENT
  Age: 74 Year
  Sex: Male
  Weight: 100 kg

DRUGS (3)
  1. DILTIAZEM HCL [Suspect]
     Active Substance: DILTIAZEM HYDROCHLORIDE
     Indication: BLOOD PRESSURE MEASUREMENT
     Dosage: 120 MG, 1X/DAY
  2. CENTRUM SILVER ADULTS 50+ [Concomitant]
     Active Substance: MINERALS\VITAMINS
     Indication: ROUTINE HEALTH MAINTENANCE
     Dosage: 1 DF, 1X/DAY, IN THE MORNING
     Dates: start: 201608, end: 201608
  3. ASPIRIN. [Concomitant]
     Active Substance: ASPIRIN
     Indication: ANTICOAGULANT THERAPY
     Dosage: 162 MG, DAILY
     Dates: start: 2014

REACTIONS (2)
  - Intentional product misuse [Unknown]
  - Chest pain [Unknown]
